FAERS Safety Report 4439017-X (Version None)
Quarter: 2004Q3

REPORT INFORMATION
  Report Type: 
  Country: None (occurrence: None)
  Receive Date: 20040901
  Receipt Date: 20040716
  Transmission Date: 20050211
  Serious: Yes (Hospitalization)
  Sender: FDA-Public Use
  Company Number: US-MERCK-0407USA01456

PATIENT
  Age: 26 Year
  Sex: Male
  Weight: 68 kg

DRUGS (4)
  1. ABILIFY [Concomitant]
     Indication: AUTISM
     Route: 048
  2. COGENTIN [Suspect]
     Indication: AKATHISIA
     Route: 048
     Dates: end: 20040713
  3. FLECAINIDE ACETATE [Concomitant]
     Indication: WOLFF-PARKINSON-WHITE SYNDROME
     Route: 048
  4. SEROQUEL [Concomitant]
     Indication: AUTISM
     Route: 048

REACTIONS (2)
  - FAILURE TO THRIVE [None]
  - URINARY RETENTION [None]
